FAERS Safety Report 24805783 (Version 1)
Quarter: 2025Q1

REPORT INFORMATION
  Report Type: Report from Study
  Country: DE (occurrence: DE)
  Receive Date: 20250103
  Receipt Date: 20250103
  Transmission Date: 20250408
  Serious: Yes (Death, Hospitalization)
  Sender: BAXTER
  Company Number: DE-BAXTER-2024BAX025953

PATIENT
  Age: 54 Year
  Sex: Female

DRUGS (4)
  1. OLIMEL [Suspect]
     Active Substance: AMINO ACIDS\DEXTROSE\SOYBEAN OIL
     Indication: Parenteral nutrition
     Route: 042
     Dates: start: 20240913, end: 20241125
  2. CERNEVIT [Suspect]
     Active Substance: VITAMINS
     Indication: Parenteral nutrition
     Route: 042
     Dates: start: 20240913, end: 20241228
  3. ELECTROLYTES NOS\MINERALS [Suspect]
     Active Substance: ELECTROLYTES NOS\MINERALS
     Indication: Parenteral nutrition
     Route: 042
     Dates: start: 20240913, end: 20241228
  4. UNSPECIFIED INGREDIENT [Suspect]
     Active Substance: UNSPECIFIED INGREDIENT
     Route: 065

REACTIONS (2)
  - Death [Fatal]
  - Infection [Recovered/Resolved]

NARRATIVE: CASE EVENT DATE: 20241007
